FAERS Safety Report 17608392 (Version 1)
Quarter: 2020Q2

REPORT INFORMATION
  Report Type: Spontaneous
  Country: US (occurrence: US)
  Receive Date: 20200401
  Receipt Date: 20200401
  Transmission Date: 20200713
  Serious: No
  Sender: FDA-Public Use
  Company Number: US-HORIZON-PRO-0089-2020

PATIENT
  Age: 35 Year
  Sex: Male

DRUGS (1)
  1. PROCYSBI [Suspect]
     Active Substance: CYSTEAMINE BITARTRATE
     Indication: AMINO ACID METABOLISM DISORDER
     Dosage: 1150 MG (15X75 MG CAPSULES, 1X25 MG CAPSULE) EVERY 12 HOURS
     Route: 048

REACTIONS (1)
  - Abdominal discomfort [Unknown]
